FAERS Safety Report 26009450 (Version 1)
Quarter: 2025Q4

REPORT INFORMATION
  Report Type: Spontaneous
  Country: KR (occurrence: KR)
  Receive Date: 20251107
  Receipt Date: 20251107
  Transmission Date: 20260117
  Serious: Yes (Other)
  Sender: ROCHE
  Company Number: KR-ROCHE-10000427410

PATIENT
  Age: 20 Year
  Sex: Female

DRUGS (1)
  1. AVASTIN [Suspect]
     Active Substance: BEVACIZUMAB
     Indication: Medulloblastoma
     Route: 065
     Dates: start: 20241009, end: 20241009

REACTIONS (1)
  - Thrombotic microangiopathy [Recovering/Resolving]

NARRATIVE: CASE EVENT DATE: 20241030
